FAERS Safety Report 18559731 (Version 1)
Quarter: 2020Q4

REPORT INFORMATION
  Report Type: Spontaneous
  Country: US (occurrence: US)
  Receive Date: 20201130
  Receipt Date: 20201130
  Transmission Date: 20210114
  Serious: Yes (Hospitalization)
  Sender: FDA-Public Use
  Company Number: US-JUBILANT CADISTA PHARMACEUTICALS-2020JUB00337

PATIENT
  Sex: Male

DRUGS (17)
  1. JANUVIA [Suspect]
     Active Substance: SITAGLIPTIN PHOSPHATE
  2. XTANDI [Suspect]
     Active Substance: ENZALUTAMIDE
     Indication: PROSTATE CANCER
     Dosage: 160 MG, 1X/DAY
     Route: 048
     Dates: start: 20200622, end: 2020
  3. KLOR-CON [Suspect]
     Active Substance: POTASSIUM CHLORIDE
  4. DULCOLAX NOS [Suspect]
     Active Substance: BISACODYL OR DOCUSATE SODIUM
  5. SIMVASTATIN. [Suspect]
     Active Substance: SIMVASTATIN
  6. PREDNISONE. [Suspect]
     Active Substance: PREDNISONE
  7. ACARBOSE. [Suspect]
     Active Substance: ACARBOSE
  8. BICALUTAMIDE. [Suspect]
     Active Substance: BICALUTAMIDE
  9. COREG [Suspect]
     Active Substance: CARVEDILOL
  10. FUROSEMIDE. [Suspect]
     Active Substance: FUROSEMIDE
  11. VITAMIN C [Suspect]
     Active Substance: ASCORBIC ACID
  12. LISINOPRIL. [Suspect]
     Active Substance: LISINOPRIL
  13. SPIRONOLACTONE. [Suspect]
     Active Substance: SPIRONOLACTONE
  14. ASPIRIN. [Suspect]
     Active Substance: ASPIRIN
  15. GLIPIZIDE. [Suspect]
     Active Substance: GLIPIZIDE
  16. METFORMIN [Suspect]
     Active Substance: METFORMIN HYDROCHLORIDE
  17. SOTALOL. [Suspect]
     Active Substance: SOTALOL

REACTIONS (3)
  - Cardiac failure congestive [Not Recovered/Not Resolved]
  - Gastric disorder [Not Recovered/Not Resolved]
  - Constipation [Not Recovered/Not Resolved]
